FAERS Safety Report 7767219 (Version 7)
Quarter: 2020Q4

REPORT INFORMATION
  Report Type: Spontaneous
  Country: PT (occurrence: PT)
  Receive Date: 20110120
  Receipt Date: 20201022
  Transmission Date: 20210114
  Serious: Yes (Hospitalization, Other)
  Sender: FDA-Public Use
  Company Number: PHHY2011PT02024

PATIENT
  Age: 3 Year
  Sex: Male

DRUGS (8)
  1. FLUCLOXACILLIN [Interacting]
     Active Substance: FLUCLOXACILLIN
     Indication: STAPHYLOCOCCAL IMPETIGO
     Dosage: UNK
     Route: 065
  2. GENTAMICIN. [Concomitant]
     Active Substance: GENTAMICIN
     Indication: PSORIASIS
     Dosage: UNK
     Route: 065
  3. GENTAMICIN. [Concomitant]
     Active Substance: GENTAMICIN
     Indication: STAPHYLOCOCCAL IMPETIGO
  4. VITAMIN D [Concomitant]
     Active Substance: VITAMIN D NOS
     Indication: PRODUCT USED FOR UNKNOWN INDICATION
     Dosage: UNK
     Route: 061
  5. FLUCLOXACILLIN [Interacting]
     Active Substance: FLUCLOXACILLIN
     Indication: ERYTHRODERMIC PSORIASIS
  6. CICLOSPORIN [Suspect]
     Active Substance: CYCLOSPORINE
     Indication: ERYTHRODERMIC PSORIASIS
     Dosage: 4 MG/KG
     Route: 048
  7. CICLOSPORIN [Interacting]
     Active Substance: CYCLOSPORINE
     Indication: STAPHYLOCOCCAL IMPETIGO
  8. GENTAMICIN. [Concomitant]
     Active Substance: GENTAMICIN
     Indication: ERYTHRODERMIC PSORIASIS

REACTIONS (9)
  - Pyrexia [Recovering/Resolving]
  - Drug hypersensitivity [Unknown]
  - Skin lesion [Recovering/Resolving]
  - Blood immunoglobulin E increased [Unknown]
  - Drug interaction [Recovered/Resolved]
  - Angioedema [Recovered/Resolved]
  - Urticaria [Recovered/Resolved]
  - Leukocytosis [Recovered/Resolved]
  - C-reactive protein increased [Recovered/Resolved]
